FAERS Safety Report 7698763-5 (Version None)
Quarter: 2011Q3

REPORT INFORMATION
  Report Type: 
  Country: None (occurrence: None)
  Receive Date: 20110819
  Receipt Date: 20110817
  Transmission Date: 20111222
  Serious: Yes (Death, Other)
  Sender: FDA-Public Use
  Company Number: VE-PFIZER INC-2011178636

PATIENT
  Age: 92 Year
  Sex: Male

DRUGS (6)
  1. CADUET [Suspect]
     Dosage: [AMLODIPINE 5MG]/ [ATORVASTATIN 40MG], 1X/DAY
     Route: 048
     Dates: start: 20090101
  2. ASPIRIN [Concomitant]
     Dosage: 100 MG, UNK
     Route: 048
  3. ZIAC [Concomitant]
     Dosage: 2.5MG, UNK
     Route: 048
  4. ARANDA [Concomitant]
     Dosage: UNK
     Route: 048
  5. PLAVIX [Concomitant]
     Dosage: 75 MG, UNK
     Route: 048
  6. VASTAREL [Concomitant]
     Dosage: 35 MG, UNK
     Route: 048

REACTIONS (2)
  - ASTHENIA [None]
  - PROSTATE CANCER METASTATIC [None]
